FAERS Safety Report 13025839 (Version 2)
Quarter: 2017Q1

REPORT INFORMATION
  Report Type: Spontaneous
  Country: GT (occurrence: GT)
  Receive Date: 20161214
  Receipt Date: 20170117
  Transmission Date: 20170428
  Serious: Yes (Death, Hospitalization, Other)
  Sender: FDA-Public Use
  Company Number: GT-ROCHE-1866922

PATIENT
  Age: 80 Year
  Sex: Female

DRUGS (1)
  1. LUCENTIS [Suspect]
     Active Substance: RANIBIZUMAB
     Indication: RETINAL VEIN OCCLUSION
     Dosage: UNK
     Route: 065
     Dates: start: 201409, end: 201501

REACTIONS (6)
  - Femur fracture [Unknown]
  - Fat embolism [Fatal]
  - Hip fracture [Unknown]
  - Death [Fatal]
  - Blindness [Unknown]
  - Fall [Unknown]
